FAERS Safety Report 17923629 (Version 1)
Quarter: 2020Q2

REPORT INFORMATION
  Report Type: Spontaneous
  Country: CN (occurrence: CN)
  Receive Date: 20200622
  Receipt Date: 20200622
  Transmission Date: 20200714
  Serious: Yes (Other)
  Sender: FDA-Public Use
  Company Number: CN-ROCHE-2623312

PATIENT
  Age: 42 Year
  Sex: Female

DRUGS (6)
  1. PACLITAXEL ALBUMIN [Suspect]
     Active Substance: PACLITAXEL
     Indication: INVASIVE DUCTAL BREAST CARCINOMA
     Route: 041
     Dates: start: 20191108
  2. HERCEPTIN [Suspect]
     Active Substance: TRASTUZUMAB
     Indication: INVASIVE DUCTAL BREAST CARCINOMA
     Dosage: NEXT DOSE RECEIVED ON 08/NOV/2019, 05/MAR/2020
     Route: 065
     Dates: start: 20190830
  3. LIPOSOMAL DOXORUBICIN HYDROCHLORIDE [Suspect]
     Active Substance: DOXORUBICIN HYDROCHLORIDE
     Indication: INVASIVE DUCTAL BREAST CARCINOMA
     Dosage: NEXT DOSE ON 30/AUG/2019
     Route: 065
     Dates: start: 20190809
  4. DOCETAXEL. [Suspect]
     Active Substance: DOCETAXEL
     Indication: INVASIVE DUCTAL BREAST CARCINOMA
     Dosage: NEXT DOSE ON 30/AUG/2019, 05/MAR/2020
     Route: 065
     Dates: start: 20190809
  5. CARBOPLATIN. [Suspect]
     Active Substance: CARBOPLATIN
     Indication: INVASIVE DUCTAL BREAST CARCINOMA
     Route: 042
     Dates: start: 20191108
  6. CYCLOPHOSPHAMIDE. [Suspect]
     Active Substance: CYCLOPHOSPHAMIDE
     Indication: INVASIVE DUCTAL BREAST CARCINOMA
     Dosage: NEXT DOSE ON 30/AUG/2019, 05/MAR/2020
     Route: 065
     Dates: start: 20190809

REACTIONS (8)
  - Tricuspid valve incompetence [Unknown]
  - Ventricular extrasystoles [Unknown]
  - White blood cell count decreased [Unknown]
  - Arrhythmia [Unknown]
  - Heart rate irregular [Unknown]
  - Mitral valve incompetence [Unknown]
  - Sinus rhythm [Unknown]
  - Electrocardiogram ST-T change [Unknown]
